FAERS Safety Report 11715819 (Version 2)
Quarter: 2016Q1

REPORT INFORMATION
  Report Type: Spontaneous
  Country: GB (occurrence: GB)
  Receive Date: 20151109
  Receipt Date: 20160106
  Transmission Date: 20160525
  Serious: Yes (Other)
  Sender: FDA-Public Use
  Company Number: GB-BAYER-2015-458653

PATIENT
  Age: 47 Year
  Sex: Female
  Weight: 79.4 kg

DRUGS (1)
  1. MIRENA [Suspect]
     Active Substance: LEVONORGESTREL
     Indication: CONTRACEPTION
     Dosage: 20 MCG/24HR, CONT
     Route: 015
     Dates: start: 20100123

REACTIONS (3)
  - Device use error [None]
  - Dementia Alzheimer^s type [None]
  - Memory impairment [None]

NARRATIVE: CASE EVENT DATE: 201503
